FAERS Safety Report 5403271-8 (Version None)
Quarter: 2007Q3

REPORT INFORMATION
  Report Type: 
  Country: None (occurrence: None)
  Receive Date: 20070801
  Receipt Date: 20070720
  Transmission Date: 20080115
  Serious: Yes (Hospitalization)
  Sender: FDA-Public Use
  Company Number: GB-PFIZER INC-2007062064

PATIENT
  Age: 55 Year
  Sex: Female
  Weight: 60 kg

DRUGS (5)
  1. GABAPENTIN [Suspect]
     Indication: GENERAL ANAESTHESIA
  2. FENTANYL [Interacting]
     Indication: GENERAL ANAESTHESIA
     Route: 042
  3. ISOFLURANE [Interacting]
     Indication: GENERAL ANAESTHESIA
  4. PROPOFOL [Interacting]
     Indication: GENERAL ANAESTHESIA
  5. OXYGEN [Concomitant]

REACTIONS (2)
  - DRUG INTERACTION [None]
  - MOVEMENT DISORDER [None]
